FAERS Safety Report 9450717 (Version 2)
Quarter: 2013Q3

REPORT INFORMATION
  Report Type: Spontaneous
  Country: US (occurrence: US)
  Receive Date: 20130809
  Receipt Date: 20130903
  Transmission Date: 20140515
  Serious: No
  Sender: FDA-Public Use
  Company Number: US-BAYER-2013-092929

PATIENT
  Age: 53 Year
  Sex: Male

DRUGS (1)
  1. STIVARGA [Suspect]
     Indication: COLORECTAL CANCER METASTATIC
     Dosage: 40MG 4 TIMES DAILY
     Route: 048
     Dates: start: 20130723, end: 20130807

REACTIONS (2)
  - Hepatic pain [None]
  - Palmar-plantar erythrodysaesthesia syndrome [Not Recovered/Not Resolved]
